FAERS Safety Report 19716253 (Version 2)
Quarter: 2021Q3

REPORT INFORMATION
  Report Type: Report from Study
  Country: None (occurrence: US)
  Receive Date: 20210818
  Receipt Date: 20210929
  Transmission Date: 20211014
  Serious: Yes (Other)
  Sender: FDA-Public Use
  Company Number: US-ABBVIE-21K-163-4033770-00

PATIENT
  Sex: Male
  Weight: 93.52 kg

DRUGS (1)
  1. VENCLEXTA [Suspect]
     Active Substance: VENETOCLAX
     Indication: CHRONIC LYMPHOCYTIC LEUKAEMIA
     Route: 048
     Dates: start: 202101

REACTIONS (7)
  - Dental caries [Unknown]
  - Exercise tolerance decreased [Unknown]
  - Memory impairment [Unknown]
  - Muscular weakness [Unknown]
  - Neoplasm malignant [Unknown]
  - Muscle atrophy [Unknown]
  - Emotional disorder [Unknown]
